FAERS Safety Report 13654407 (Version 1)
Quarter: 2017Q2

REPORT INFORMATION
  Report Type: Spontaneous
  Country: US (occurrence: US)
  Receive Date: 20170615
  Receipt Date: 20170615
  Transmission Date: 20170830
  Serious: Yes (Hospitalization)
  Sender: FDA-Public Use
  Company Number: US-BEH-2017081080

PATIENT
  Sex: Male
  Weight: 121.9 kg

DRUGS (17)
  1. SODIUM CHLORIDE. [Concomitant]
     Active Substance: SODIUM CHLORIDE
  2. BERINERT [Suspect]
     Active Substance: HUMAN C1-ESTERASE INHIBITOR
     Indication: HEREDITARY ANGIOEDEMA
     Dosage: 2500 IU, PRN
     Route: 042
     Dates: start: 20140331
  3. STERILE WATER [Concomitant]
     Active Substance: WATER
  4. CLONIDINE. [Concomitant]
     Active Substance: CLONIDINE
  5. VITAMIN C [Concomitant]
     Active Substance: ASCORBIC ACID
  6. TOPAMAX [Concomitant]
     Active Substance: TOPIRAMATE
  7. TOPIRAMATE. [Concomitant]
     Active Substance: TOPIRAMATE
  8. BERINERT [Suspect]
     Active Substance: HUMAN C1-ESTERASE INHIBITOR
     Dosage: UNK
     Route: 042
  9. EPIPEN [Concomitant]
     Active Substance: EPINEPHRINE
  10. VITAMIN D3 [Concomitant]
     Active Substance: CHOLECALCIFEROL
  11. HEPARIN [Concomitant]
     Active Substance: HEPARIN SODIUM
  12. FLUOXETINE [Concomitant]
     Active Substance: FLUOXETINE HYDROCHLORIDE
  13. DIPHENHYDRAMINE. [Concomitant]
     Active Substance: DIPHENHYDRAMINE
  14. OMEPRAZOLE. [Concomitant]
     Active Substance: OMEPRAZOLE
  15. BUSPIRONE [Concomitant]
     Active Substance: BUSPIRONE HYDROCHLORIDE
  16. RIZATRIPTAN. [Concomitant]
     Active Substance: RIZATRIPTAN
  17. IBUPROFEN. [Concomitant]
     Active Substance: IBUPROFEN

REACTIONS (1)
  - Drug ineffective [Not Recovered/Not Resolved]
